FAERS Safety Report 11081153 (Version 1)
Quarter: 2015Q2

REPORT INFORMATION
  Report Type: Report from Study
  Country: US (occurrence: US)
  Receive Date: 20150501
  Receipt Date: 20150501
  Transmission Date: 20150821
  Serious: Yes (Other)
  Sender: FDA-Public Use
  Company Number: US-PFIZER INC-2015144803

PATIENT
  Age: 83 Year
  Sex: Female
  Weight: 49 kg

DRUGS (1)
  1. AROMASIN [Suspect]
     Active Substance: EXEMESTANE
     Dosage: 25 MG, 1X/DAY
     Dates: start: 20081111, end: 20090205

REACTIONS (1)
  - Toxicity to various agents [Unknown]
